FAERS Safety Report 13009927 (Version 1)
Quarter: 2016Q4

REPORT INFORMATION
  Report Type: Report from Study
  Country: VE (occurrence: VE)
  Receive Date: 20161208
  Receipt Date: 20161208
  Transmission Date: 20170207
  Serious: Yes (Other)
  Sender: FDA-Public Use
  Company Number: PHHY2016VE167509

PATIENT
  Sex: Female

DRUGS (4)
  1. FEMARA [Suspect]
     Active Substance: LETROZOLE
     Indication: BREAST CANCER
     Dosage: 2.5 MG, QD
     Route: 048
     Dates: start: 20130113
  2. AMLODIPINE [Concomitant]
     Active Substance: AMLODIPINE BESYLATE
     Indication: BLOOD PRESSURE MEASUREMENT
     Dosage: 5 MG, QD
     Route: 065
  3. GLUCOFAGE [Concomitant]
     Indication: BLOOD PRESSURE ABNORMAL
     Dosage: 750 MG, QD
     Route: 065
  4. ATORVASTATINE [Concomitant]
     Active Substance: ATORVASTATIN
     Indication: BLOOD PRESSURE MEASUREMENT
     Dosage: 20 MG, QD
     Route: 065

REACTIONS (1)
  - Feeling abnormal [Recovered/Resolved]
